FAERS Safety Report 25367941 (Version 3)
Quarter: 2025Q3

REPORT INFORMATION
  Report Type: Spontaneous
  Country: EU (occurrence: EU)
  Receive Date: 20250528
  Receipt Date: 20250917
  Transmission Date: 20251020
  Serious: Yes (Hospitalization)
  Sender: PFIZER
  Company Number: None

PATIENT
  Age: 62 Year
  Sex: Male

DRUGS (10)
  1. FILGRASTIM [Suspect]
     Active Substance: FILGRASTIM
     Indication: Agranulocytosis
     Dosage: 1 DF, DAILY AT 2PM, STRENGTH: 30 MU/0,5 ML
     Route: 058
     Dates: start: 20250506, end: 20250518
  2. OXAZEPAM [Concomitant]
     Active Substance: OXAZEPAM
  3. TRIMEPRAZINE [Concomitant]
     Active Substance: TRIMEPRAZINE
  4. VENLAFAXINE [Concomitant]
     Active Substance: VENLAFAXINE HYDROCHLORIDE
  5. GAVISCON [ALUMINIUM HYDROXIDE;CALCIUM CARBONATE;SODIUM ALGINATE;SODIUM [Concomitant]
  6. ALFUZOSIN [Concomitant]
     Active Substance: ALFUZOSIN
  7. LEVOTHYROXINE [Concomitant]
     Active Substance: LEVOTHYROXINE
  8. HYDROCORTISONE [Concomitant]
     Active Substance: HYDROCORTISONE
  9. FLUDROCORTISONE ACETATE [Concomitant]
     Active Substance: FLUDROCORTISONE ACETATE
  10. FOLIC ACID [Concomitant]
     Active Substance: FOLIC ACID

REACTIONS (2)
  - Hepatic cytolysis [Recovering/Resolving]
  - Cholestasis [Recovering/Resolving]

NARRATIVE: CASE EVENT DATE: 20250508
